FAERS Safety Report 17611285 (Version 1)
Quarter: 2020Q2

REPORT INFORMATION
  Report Type: Spontaneous
  Country: US (occurrence: US)
  Receive Date: 20200401
  Receipt Date: 20200401
  Transmission Date: 20200713
  Serious: No
  Sender: FDA-Public Use
  Company Number: US-NEPHRON STERILE COMPOUNDING CENTER-2082207

PATIENT
  Age: 14 Year
  Sex: Female
  Weight: 43 kg

DRUGS (20)
  1. FLONASE [Concomitant]
     Active Substance: FLUTICASONE PROPIONATE
     Route: 045
  2. VANCOMYCIN HYDROCHLORIDE. [Concomitant]
     Active Substance: VANCOMYCIN HYDROCHLORIDE
     Route: 047
  3. METHADONE [Concomitant]
     Active Substance: METHADONE HYDROCHLORIDE
     Route: 048
  4. BACITRACIN. [Concomitant]
     Active Substance: BACITRACIN
     Route: 047
  5. DEXMEDETOMIDINE. [Concomitant]
     Active Substance: DEXMEDETOMIDINE
     Route: 041
  6. CLONAZEPAM. [Concomitant]
     Active Substance: CLONAZEPAM
     Route: 048
  7. KETAMINE HYDROCHLORIDE 50MG/5ML [Suspect]
     Active Substance: KETAMINE HYDROCHLORIDE
     Indication: LIGHT ANAESTHESIA
     Route: 040
     Dates: start: 20200319, end: 20200319
  8. RESTASIS [Concomitant]
     Active Substance: CYCLOSPORINE
     Route: 047
  9. PAROXETINE. [Concomitant]
     Active Substance: PAROXETINE
     Route: 048
  10. CEFTAZIDIME. [Concomitant]
     Active Substance: CEFTAZIDIME
     Route: 047
  11. LEVOTHYROXINE. [Concomitant]
     Active Substance: LEVOTHYROXINE
     Route: 048
  12. ALBUTEROL SULFATE. [Concomitant]
     Active Substance: ALBUTEROL SULFATE
     Route: 055
  13. CLONIDINE TRANSDERMAL SYSTEM [Concomitant]
     Active Substance: CLONIDINE
     Route: 062
  14. AMBISOME [Concomitant]
     Active Substance: AMPHOTERICIN B
     Route: 047
  15. ESOMEPRAZOLE MAGNESIUM. [Concomitant]
     Active Substance: ESOMEPRAZOLE MAGNESIUM
     Route: 048
  16. LORAZEPAM. [Concomitant]
     Active Substance: LORAZEPAM
     Route: 042
  17. MEROPENEM. [Concomitant]
     Active Substance: MEROPENEM
     Route: 042
  18. MORPHINE SULFATE. [Concomitant]
     Active Substance: MORPHINE SULFATE
     Route: 042
  19. TOBRAMYCIN. [Concomitant]
     Active Substance: TOBRAMYCIN
     Route: 047
  20. VORICONAZOLE. [Concomitant]
     Active Substance: VORICONAZOLE
     Route: 047

REACTIONS (2)
  - Bradycardia [Recovered/Resolved]
  - Oxygen saturation decreased [Recovered/Resolved]

NARRATIVE: CASE EVENT DATE: 20200319
